APPROVED DRUG PRODUCT: IRBESARTAN
Active Ingredient: IRBESARTAN
Strength: 75MG
Dosage Form/Route: TABLET;ORAL
Application: A090720 | Product #001
Applicant: WATSON LABORATORIES INC
Approved: Oct 12, 2012 | RLD: No | RS: No | Type: DISCN